FAERS Safety Report 9796350 (Version 1)
Quarter: 2014Q1

REPORT INFORMATION
  Report Type: Spontaneous
  Country: US (occurrence: US)
  Receive Date: 20140103
  Receipt Date: 20140103
  Transmission Date: 20141002
  Serious: No
  Sender: FDA-Public Use
  Company Number: US-009507513-1401USA000325

PATIENT
  Age: 42 Year
  Sex: Male
  Weight: 99.77 kg

DRUGS (2)
  1. CLARITIN-D-24 [Suspect]
     Indication: ALLERGIC SINUSITIS
     Dosage: 10 MG, ONCE
     Route: 048
     Dates: start: 20131218
  2. CLARITIN-D-24 [Suspect]
     Dosage: UNK, ONCE
     Route: 048
     Dates: start: 20131217

REACTIONS (5)
  - Foreign body [Not Recovered/Not Resolved]
  - Dysphagia [Not Recovered/Not Resolved]
  - Regurgitation [Not Recovered/Not Resolved]
  - Oesophageal pain [Not Recovered/Not Resolved]
  - Wrong technique in drug usage process [Unknown]
